FAERS Safety Report 8546465 (Version 3)
Quarter: 2012Q4

REPORT INFORMATION
  Report Type: 
  Country: GB (occurrence: GB)
  Receive Date: 20120504
  Receipt Date: 20121228
  Transmission Date: 20130627
  Serious: Yes (Death, Hospitalization, Other)
  Sender: FDA-Public Use
  Company Number: GB-MILLENNIUM PHARMACEUTICALS, INC.-2012-03004

PATIENT

DRUGS (10)
  1. VELCADE [Suspect]
     Indication: MULTIPLE MYELOMA
     Dosage: 2.25 mg, UNK
     Route: 058
     Dates: start: 20120326, end: 20120426
  2. FUROSEMIDE [Concomitant]
     Dosage: 40 mg, UNK
  3. FLUDROCORTISONE [Concomitant]
     Indication: ORTHOSTATIC HYPOTENSION
     Dosage: UNK
  4. DEXAMETHASONE [Concomitant]
     Indication: MULTIPLE MYELOMA
  5. OMEPRAZOLE [Concomitant]
  6. WARFARIN [Concomitant]
     Indication: ATRIAL FIBRILLATION
  7. ACICLOVIR [Concomitant]
     Indication: PROPHYLAXIS
  8. FLUCONAZOLE [Concomitant]
     Indication: PROPHYLAXIS
  9. ALLOPURINOL [Concomitant]
  10. BISOPROLOL [Concomitant]

REACTIONS (10)
  - Cardiac arrest [Fatal]
  - Haemorrhage [Unknown]
  - Off label use [Unknown]
  - Oedema peripheral [Unknown]
  - Cyanosis [Unknown]
  - Atrial fibrillation [Unknown]
  - Pulmonary hypertension [Unknown]
  - Syncope [Unknown]
  - Unresponsive to stimuli [Unknown]
  - Circulatory collapse [Unknown]
